FAERS Safety Report 13476507 (Version 3)
Quarter: 2017Q2

REPORT INFORMATION
  Report Type: Report from Study
  Country: HU (occurrence: HU)
  Receive Date: 20170425
  Receipt Date: 20170526
  Transmission Date: 20170830
  Serious: Yes (Hospitalization)
  Sender: FDA-Public Use
  Company Number: HU-PFIZER INC-2017175282

PATIENT
  Age: 73 Year
  Sex: Female
  Weight: 50 kg

DRUGS (14)
  1. KERBERAN [Concomitant]
     Indication: CEREBROVASCULAR ACCIDENT
     Dosage: 75 MG, 1X/DAY
     Route: 048
     Dates: start: 2004
  2. DOCETAXEL. [Suspect]
     Active Substance: DOCETAXEL
     Dosage: 81 MG, CYCLIC, ONCE EVERY 3 WEEKS
     Route: 042
     Dates: start: 20170324
  3. LUCETAM [Concomitant]
     Indication: CEREBROVASCULAR ACCIDENT
     Dosage: 1200 MG, 2X/DAY
     Route: 048
     Dates: start: 2004
  4. MEGYRINA [Concomitant]
     Indication: CACHEXIA
     Dosage: 20 ML, 1X/DAY
     Route: 048
     Dates: start: 20160608
  5. DOCETAXEL. [Suspect]
     Active Substance: DOCETAXEL
     Indication: NON-SMALL CELL LUNG CANCER
     Dosage: 113 MG, CYCLIC, ONCE EVERY 3 WEEKS
     Route: 042
     Dates: start: 20161125
  6. DOCETAXEL. [Suspect]
     Active Substance: DOCETAXEL
     Dosage: UNK, CYCLIC, ONCE EVERY 3 WEEKS
     Route: 042
  7. BETASERC [Concomitant]
     Active Substance: BETAHISTINE
     Indication: VERTEBROBASILAR INSUFFICIENCY
     Dosage: 24 MG, 2X/DAY
     Route: 048
     Dates: start: 20120701
  8. DIAPREL [Concomitant]
     Active Substance: GLICLAZIDE
     Indication: DIABETES MELLITUS
     Dosage: 60-0-30 MG, 2X/DAY
     Route: 048
     Dates: start: 20170109
  9. DOCETAXEL. [Suspect]
     Active Substance: DOCETAXEL
     Dosage: UNK, CYCLIC, ONCE EVERY 3 WEEKS
     Route: 042
  10. ROSUVASTATIN. [Concomitant]
     Active Substance: ROSUVASTATIN
     Indication: HYPERLIPIDAEMIA
     Dosage: 10 MG, 1X/DAY
     Route: 048
     Dates: start: 20120701
  11. FRONTIN [Concomitant]
     Active Substance: ALPRAZOLAM
     Indication: ANXIETY
     Dosage: 0.5 MG, 1X/DAY
     Route: 048
     Dates: start: 20120101
  12. BISOPROLOL [Concomitant]
     Active Substance: BISOPROLOL
     Indication: HYPERTENSION
     Dosage: 5 MG, 1X/DAY
     Route: 048
     Dates: start: 2006
  13. NEO FERRO FOLGAMMA [Concomitant]
     Indication: ANAEMIA
     Dosage: 114MG/0.8MG, 2X/DAY
     Route: 048
     Dates: start: 20161020
  14. DOCETAXEL. [Suspect]
     Active Substance: DOCETAXEL
     Dosage: UNK, CYCLIC, ONCE EVERY 3 WEEKS
     Route: 042

REACTIONS (1)
  - Bronchitis [Recovered/Resolved]

NARRATIVE: CASE EVENT DATE: 20170404
